FAERS Safety Report 12894654 (Version 1)
Quarter: 2016Q4

REPORT INFORMATION
  Report Type: Spontaneous
  Country: US (occurrence: US)
  Receive Date: 20161028
  Receipt Date: 20161028
  Transmission Date: 20170207
  Serious: Yes (Other)
  Sender: FDA-Public Use
  Company Number: US-FRESENIUS KABI-FK201608193

PATIENT
  Age: 32 Year
  Sex: Female
  Weight: 60.1 kg

DRUGS (1)
  1. SENSORCAINE MPF WITH EPINEPHRINE [Suspect]
     Active Substance: BUPIVACAINE HYDROCHLORIDE\EPINEPHRINE
     Indication: LOOP ELECTROSURGICAL EXCISION PROCEDURE
     Route: 058
     Dates: start: 20161025, end: 20161025

REACTIONS (2)
  - Haemorrhage [Unknown]
  - Procedural haemorrhage [None]

NARRATIVE: CASE EVENT DATE: 20161025
